FAERS Safety Report 9515623 (Version 2)
Quarter: 2014Q1

REPORT INFORMATION
  Report Type: Spontaneous
  Country: US (occurrence: None)
  Receive Date: 20130305
  Receipt Date: 20140306
  Transmission Date: 20141002
  Serious: Yes (Hospitalization, Other)
  Sender: FDA-Public Use
  Company Number: 163-21880-12103625

PATIENT
  Age: 51 Year
  Sex: Male
  Weight: 114.31 kg

DRUGS (11)
  1. REVLIMID [Suspect]
     Indication: CHRONIC LYMPHOCYTIC LEUKAEMIA
     Dosage: 1 IN 2 D
     Route: 048
     Dates: start: 20120611
  2. SIMVASTATIN [Suspect]
     Indication: PRODUCT USED FOR UNKNOWN INDICATION
  3. ASPIRIN (ACETYLSALICYLIC ACID) (UNKNOWN) (ACETYLSALICYLIC ACID) [Concomitant]
  4. FAMCICLOVIR (FAMCICLOVIR) (UNKNOWN) [Concomitant]
  5. FISH OIL (FISH OIL) (UNKNOWN) [Concomitant]
  6. TAMSULOSIN (TAMSULOSIN) (UNKNOWN) [Concomitant]
  7. GLIMEPIRIDE (GLIMEPIRIDE) (UNKNOWN) [Concomitant]
  8. SITAGLIPTIN (SITAGLIPTIN) (UNKNOWN) [Concomitant]
  9. TELMISARTAN (TELMISARTAN) (UNKNOWN) [Concomitant]
  10. SENNA (SENNA) (UNKNOWN) [Concomitant]
  11. FENOFIBRIC ACID (FENOFIBRIC ACID) (UNKNOWN) [Concomitant]

REACTIONS (4)
  - Myalgia [None]
  - Thrombocytopenia [None]
  - Arthralgia [None]
  - Glomerular filtration rate decreased [None]
